FAERS Safety Report 6365355-X (Version None)
Quarter: 2009Q3

REPORT INFORMATION
  Report Type: 
  Country: None (occurrence: None)
  Receive Date: 20090919
  Receipt Date: 20090812
  Transmission Date: 20100115
  Serious: Yes (Other)
  Sender: FDA-Public Use
  Company Number: US-ABBOTT-09P-163-0591148-00

PATIENT
  Sex: Female
  Weight: 43.584 kg

DRUGS (1)
  1. HUMIRA [Suspect]
     Indication: CROHN'S DISEASE
     Route: 058
     Dates: start: 20071104, end: 20080101

REACTIONS (7)
  - FATIGUE [None]
  - FUNGAL SKIN INFECTION [None]
  - INFLUENZA LIKE ILLNESS [None]
  - INJECTION SITE IRRITATION [None]
  - RHINORRHOEA [None]
  - SNEEZING [None]
  - SURGERY [None]
